FAERS Safety Report 9280120 (Version 1)
Quarter: 2013Q2

REPORT INFORMATION
  Report Type: Spontaneous
  Country: US (occurrence: None)
  Receive Date: 20130507
  Receipt Date: 20130507
  Transmission Date: 20140414
  Serious: Yes (Other)
  Sender: FDA-Public Use
  Company Number: None

PATIENT
  Age: 71 Year
  Sex: 0

DRUGS (1)
  1. BYSTOLIC [Suspect]
     Indication: HEART RATE DECREASED
     Dates: start: 201301

REACTIONS (1)
  - Heart rate irregular [None]
